FAERS Safety Report 4790319-7 (Version None)
Quarter: 2005Q4

REPORT INFORMATION
  Report Type: 
  Country: None (occurrence: None)
  Receive Date: 20051005
  Receipt Date: 20051005
  Transmission Date: 20060501
  Serious: Yes (Life-Threatening, Hospitalization)
  Sender: FDA-Public Use
  Company Number: None

PATIENT
  Sex: Female

DRUGS (1)
  1. NORVASC [Suspect]
     Indication: HYPERTENSION
     Dosage: PO DAILY
     Route: 048
     Dates: start: 20040501, end: 20040601

REACTIONS (8)
  - DIPLOPIA [None]
  - FACIAL PALSY [None]
  - HAEMORRHAGIC INFARCTION [None]
  - HEMIPARESIS [None]
  - HYPERTENSION [None]
  - HYPOAESTHESIA [None]
  - THALAMUS HAEMORRHAGE [None]
  - VISUAL DISTURBANCE [None]
